FAERS Safety Report 7744894 (Version 6)
Quarter: 2013Q4

REPORT INFORMATION
  Report Type: Report from Study
  Country: DE (occurrence: DE)
  Receive Date: 20101230
  Receipt Date: 20131008
  Transmission Date: 20140711
  Serious: Yes (Hospitalization, Disabling)
  Sender: FDA-Public Use
  Company Number: PHHO2010DE19645

PATIENT
  Age: 48 Year
  Sex: Female
  Weight: 72 kg

DRUGS (7)
  1. ZOLEDRONATE [Suspect]
     Indication: METASTASES TO BONE
     Dosage: 4 MG, MONTHLY
     Route: 042
     Dates: start: 20090306, end: 20090731
  2. ZOLEDRONATE [Suspect]
     Dosage: 4 MG, THREE MONTHLY
     Route: 042
     Dates: start: 20091031
  3. CGS 20267 [Suspect]
     Indication: METASTASES TO BONE
     Dosage: 2.5 MG, UNK
     Route: 048
     Dates: start: 20100415
  4. CALCIUM [Concomitant]
  5. VITAMIN D [Concomitant]
  6. SIMVASTATIN [Concomitant]
     Indication: HYPERCHOLESTEROLAEMIA
     Dosage: 10 MG, (0-0-2)
     Route: 048
     Dates: start: 20120112
  7. LYRICA [Concomitant]
     Indication: ARNOLD-CHIARI MALFORMATION
     Dosage: 100 MG, (1-0-0)
     Route: 048
     Dates: start: 20130521

REACTIONS (2)
  - Osteonecrosis of jaw [Recovered/Resolved with Sequelae]
  - Arnold-Chiari malformation [Recovering/Resolving]
